FAERS Safety Report 21780209 (Version 1)
Quarter: 2022Q4

REPORT INFORMATION
  Report Type: Report from Study
  Country: US (occurrence: US)
  Receive Date: 20221227
  Receipt Date: 20221227
  Transmission Date: 20230112
  Serious: Yes (Death)
  Sender: FDA-Public Use
  Company Number: US-ABBVIE-4249494

PATIENT
  Age: 60 Year
  Sex: Male

DRUGS (4)
  1. VENCLEXTA [Suspect]
     Active Substance: VENETOCLAX
     Indication: Myelodysplastic syndrome
     Dosage: TAKE 1 TABLET BY MOUTH ON DAY ONE DATE OF TREATMENT-07-JAN-2021, LINE OF THERAPY- FIRST?FORM STRE...
     Route: 048
     Dates: start: 20210107
  2. VENCLEXTA [Suspect]
     Active Substance: VENETOCLAX
     Indication: Myelodysplastic syndrome
     Dosage: 14 DAYS THERAPY OF 28 DAYS/TAKE 4 TABLET(S) BY MOUTH EVERY DAY 2 WEEK(S) ON, 2 WEEK(S) OFF?FORM S...
     Route: 048
  3. VENCLEXTA [Suspect]
     Active Substance: VENETOCLAX
     Indication: Myelodysplastic syndrome
     Dosage: TAKE 4 TABLET(S) BY MOUTH ON DAY 3-14 THEN OFF 14 DAYS?FORM STRENGTH 100 MILLIGRAM?DAY 4 AND BEYOND
     Route: 048
  4. VENCLEXTA [Suspect]
     Active Substance: VENETOCLAX
     Indication: Myelodysplastic syndrome
     Dosage: TAKE 2 TABLET(S) BY MOUTH ON DAY TWO?FORM STRENGTH 100 MILLIGRAM
     Route: 048

REACTIONS (2)
  - Death [Fatal]
  - Off label use [Unknown]

NARRATIVE: CASE EVENT DATE: 20221219
